FAERS Safety Report 9069117 (Version 1)
Quarter: 2013Q1

REPORT INFORMATION
  Report Type: Spontaneous
  Country: US (occurrence: US)
  Receive Date: 20130215
  Receipt Date: 20130215
  Transmission Date: 20140127
  Serious: No
  Sender: FDA-Public Use
  Company Number: US-BAYER-2013-018893

PATIENT
  Age: 39 Year
  Sex: Male
  Weight: 95.24 kg

DRUGS (1)
  1. ALEVE CAPLET/TABLET,MIDOL EXTENDED RELIEF CAPLET [Suspect]
     Indication: TOOTHACHE
     Dosage: 7 DF, WITHIN 4 HOURS
     Route: 048
     Dates: start: 20130202

REACTIONS (1)
  - Overdose [None]
